FAERS Safety Report 8660016 (Version 2)
Quarter: 2012Q4

REPORT INFORMATION
  Report Type: 
  Country: US (occurrence: US)
  Receive Date: 20120711
  Receipt Date: 20120904
  Transmission Date: 20130627
  Serious: No
  Sender: FDA-Public Use
  Company Number: US-PFIZER INC-2012164357

PATIENT
  Age: 72 Year
  Sex: Female
  Weight: 58.96 kg

DRUGS (7)
  1. LYRICA [Suspect]
     Indication: NEUROPATHY PERIPHERAL
     Dosage: 25 mg, 3x/day
     Route: 048
     Dates: start: 20120616
  2. LYRICA [Suspect]
     Indication: HYPOAESTHESIA
  3. NEURONTIN [Suspect]
     Indication: NEUROPATHY PERIPHERAL
     Dosage: UNK
     Dates: start: 2012, end: 2012
  4. NEURONTIN [Suspect]
     Indication: HYPOAESTHESIA
  5. OXALIPLATIN [Suspect]
     Indication: CHEMOTHERAPY
     Dosage: UNK
     Route: 042
     Dates: start: 201109, end: 201204
  6. XELODA [Suspect]
     Indication: CHEMOTHERAPY
     Dosage: 500 mg, UNK
     Dates: start: 201109, end: 201204
  7. SYNTHROID [Concomitant]
     Indication: THYROID DISORDER
     Dosage: 112 ug, daily

REACTIONS (2)
  - Hypoaesthesia [Not Recovered/Not Resolved]
  - Drug ineffective [Unknown]
